FAERS Safety Report 16844481 (Version 2)
Quarter: 2019Q4

REPORT INFORMATION
  Report Type: Report from Study
  Country: US (occurrence: US)
  Receive Date: 20190924
  Receipt Date: 20191029
  Transmission Date: 20200122
  Serious: Yes (Other)
  Sender: FDA-Public Use
  Company Number: US-ENDO PHARMACEUTICALS INC-2019-108238

PATIENT
  Sex: Male
  Weight: 72.57 kg

DRUGS (4)
  1. LENVIMA [Concomitant]
     Active Substance: LENVATINIB
     Indication: RENAL CELL CARCINOMA
     Dosage: 18 MG, DAILY
     Route: 048
     Dates: start: 20181027, end: 2019
  2. AFINITOR [Concomitant]
     Active Substance: EVEROLIMUS
     Indication: PRODUCT USED FOR UNKNOWN INDICATION
     Dosage: 5 MG, DAILY
     Route: 065
     Dates: start: 201812
  3. PREDNISONE. [Suspect]
     Active Substance: PREDNISONE
     Indication: PRODUCT USED FOR UNKNOWN INDICATION
     Dosage: UNK
     Route: 065
     Dates: start: 2019
  4. AFINITOR [Concomitant]
     Active Substance: EVEROLIMUS
     Dosage: 2.5 MG, DAILY
     Route: 065
     Dates: start: 201812

REACTIONS (1)
  - Internal haemorrhage [Unknown]

NARRATIVE: CASE EVENT DATE: 2019
